FAERS Safety Report 7393536-5 (Version None)
Quarter: 2011Q2

REPORT INFORMATION
  Report Type: 
  Country: None (occurrence: None)
  Receive Date: 20110405
  Receipt Date: 20110323
  Transmission Date: 20111010
  Serious: Yes (Death)
  Sender: FDA-Public Use
  Company Number: JP-BAYER-2011-021468

PATIENT
  Sex: Male
  Weight: 95 kg

DRUGS (8)
  1. FLUITRAN [Concomitant]
     Dosage: DAILY DOSE 1 MG
     Route: 048
     Dates: start: 20091204, end: 20110308
  2. ADALAT CC [Concomitant]
     Dosage: DAILY DOSE 20 MG
     Route: 048
     Dates: start: 20091204, end: 20110308
  3. BARACLUDE [Concomitant]
     Dosage: DAILY DOSE .5 MG
     Route: 048
     Dates: start: 20091204, end: 20110308
  4. DIOVAN [Concomitant]
     Dosage: DAILY DOSE 120 MG
     Route: 048
     Dates: start: 20091204, end: 20110308
  5. NEXAVAR [Suspect]
     Indication: HEPATIC NEOPLASM MALIGNANT
     Dosage: DAILY DOSE 800 MG
     Route: 048
     Dates: start: 20110208, end: 20110221
  6. TAKEPRON [Concomitant]
     Dosage: DAILY DOSE 30 MG
     Route: 048
     Dates: start: 20091204, end: 20110308
  7. NEXAVAR [Suspect]
     Dosage: DAILY DOSE 400 MG
     Route: 048
     Dates: start: 20110222, end: 20110308
  8. LIPITOR [Concomitant]
     Dosage: DAILY DOSE 10 MG
     Route: 048
     Dates: start: 20091204, end: 20110308

REACTIONS (1)
  - HEPATIC FAILURE [None]
